FAERS Safety Report 24878563 (Version 1)
Quarter: 2025Q1

REPORT INFORMATION
  Report Type: Spontaneous
  Country: CN (occurrence: CN)
  Receive Date: 20250123
  Receipt Date: 20250123
  Transmission Date: 20250409
  Serious: Yes (Other)
  Sender: PFIZER
  Company Number: CN-PFIZER INC-PV202500008490

PATIENT
  Age: 58 Year
  Sex: Female
  Weight: 47 kg

DRUGS (2)
  1. CYTARABINE [Suspect]
     Active Substance: CYTARABINE
     Indication: Acute myeloid leukaemia
     Dosage: 50.000 MG, 1X/DAY
     Route: 041
     Dates: start: 20241228, end: 20241230
  2. DAUNORUBICIN HYDROCHLORIDE [Suspect]
     Active Substance: DAUNORUBICIN HYDROCHLORIDE
     Indication: Chemotherapy
     Dosage: 85.000 MG, 1X/DAY
     Route: 041
     Dates: start: 20250101, end: 20250103

REACTIONS (5)
  - Myelosuppression [Recovering/Resolving]
  - Haemarthrosis [Unknown]
  - Asthenia [Unknown]
  - Mouth ulceration [Unknown]
  - Neoplasm recurrence [Unknown]

NARRATIVE: CASE EVENT DATE: 20250106
